FAERS Safety Report 5019916-0 (Version None)
Quarter: 2006Q2

REPORT INFORMATION
  Report Type: 
  Country: None (occurrence: None)
  Receive Date: 20060605
  Receipt Date: 20060605
  Transmission Date: 20061013
  Serious: Yes (Death, Hospitalization, Other)
  Sender: FDA-Public Use
  Company Number: None

PATIENT
  Sex: Male
  Weight: 14.3 kg

DRUGS (5)
  1. CYTARABINE [Suspect]
     Indication: LYMPHOCYTIC LEUKAEMIA
     Dosage: 30 MG
     Dates: start: 20060303, end: 20060303
  2. DEXAMETHASONE TAB [Suspect]
     Dosage: 45 MG
     Dates: start: 20060303, end: 20060316
  3. METHOTREXATE [Suspect]
     Dosage: 8 MG
     Dates: start: 20060310, end: 20060310
  4. PEG-L-ASPARAGINASE (K-H) [Suspect]
     Dosage: 1500 UNIT
     Dates: start: 20060306, end: 20060306
  5. VINCRISTINE SULFATE [Suspect]
     Dosage: 1.8 MG
     Dates: start: 20060303, end: 20060310

REACTIONS (27)
  - ABDOMINAL DISTENSION [None]
  - ABSCESS [None]
  - BLOOD PRESSURE DECREASED [None]
  - CONDITION AGGRAVATED [None]
  - COUGH [None]
  - DRUG EFFECT DECREASED [None]
  - DRUG INEFFECTIVE [None]
  - HAEMOPTYSIS [None]
  - HERPES SIMPLEX [None]
  - HERPES VIRUS INFECTION [None]
  - LUNG INFILTRATION [None]
  - MORAXELLA INFECTION [None]
  - MOUTH HAEMORRHAGE [None]
  - OBSTRUCTIVE AIRWAYS DISORDER [None]
  - ORAL SOFT TISSUE DISORDER [None]
  - OXYGEN SATURATION DECREASED [None]
  - PNEUMOMEDIASTINUM [None]
  - PNEUMOTHORAX [None]
  - PULMONARY HAEMORRHAGE [None]
  - PYREXIA [None]
  - RESPIRATORY DISORDER [None]
  - RESPIRATORY DISTRESS [None]
  - RESPIRATORY RATE INCREASED [None]
  - SKIN LESION [None]
  - STENOTROPHOMONAS INFECTION [None]
  - TACHYCARDIA [None]
  - TRACHEAL HAEMORRHAGE [None]
